FAERS Safety Report 10890046 (Version 1)
Quarter: 2015Q1

REPORT INFORMATION
  Report Type: Spontaneous
  Country: US (occurrence: US)
  Receive Date: 20150305
  Receipt Date: 20150305
  Transmission Date: 20150721
  Serious: No
  Sender: FDA-Public Use
  Company Number: US-PFIZER INC-2015077378

PATIENT
  Age: 57 Year

DRUGS (2)
  1. EFFEXOR [Suspect]
     Active Substance: VENLAFAXINE HYDROCHLORIDE
     Dosage: UNK
  2. NORVIR [Suspect]
     Active Substance: RITONAVIR
     Dosage: UNK

REACTIONS (1)
  - Drug hypersensitivity [Unknown]
